FAERS Safety Report 8415992-3 (Version None)
Quarter: 2012Q2

REPORT INFORMATION
  Report Type: 
  Country: None (occurrence: None)
  Receive Date: 20120606
  Receipt Date: 20120601
  Transmission Date: 20120825
  Serious: Yes (Other)
  Sender: FDA-Public Use
  Company Number: BR-PFIZER INC-2012133483

PATIENT
  Sex: Female

DRUGS (1)
  1. ALDACTONE [Suspect]
     Route: 048

REACTIONS (3)
  - ANGER [None]
  - HAEMORRHAGE [None]
  - INCORRECT DOSE ADMINISTERED [None]
